FAERS Safety Report 18341519 (Version 1)
Quarter: 2020Q4

REPORT INFORMATION
  Report Type: Spontaneous
  Country: DE (occurrence: DE)
  Receive Date: 20201004
  Receipt Date: 20201004
  Transmission Date: 20210113
  Serious: Yes (Hospitalization)
  Sender: FDA-Public Use
  Company Number: DE-TEVA-2020-DE-1834305

PATIENT
  Age: 44 Year
  Sex: Male
  Weight: 65 kg

DRUGS (9)
  1. CLONAZEPAM. [Suspect]
     Active Substance: CLONAZEPAM
     Dosage: 1 MILLIGRAM DAILY;  1-0-1-0
     Route: 048
  2. RAMIPRIL. [Concomitant]
     Active Substance: RAMIPRIL
     Dosage: 5 MILLIGRAM DAILY; 1-0-0-0
     Route: 048
  3. BUTYLSCOPOLAMIN [Concomitant]
     Dosage: 30 MILLIGRAM DAILY; 1-1-1-0
  4. PANTOPRAZOL [Concomitant]
     Active Substance: PANTOPRAZOLE SODIUM
     Dosage: 40 MILLIGRAM DAILY; 1-0-0-0
     Route: 048
  5. METOPROLOL. [Concomitant]
     Active Substance: METOPROLOL
     Dosage: .5 DOSAGE FORMS DAILY; 47.5 MG, 0.5-0-0-0
     Route: 048
  6. BUDESONIDE W/FORMOTEROL [Concomitant]
     Active Substance: BUDESONIDE\FORMOTEROL
     Dosage: 2 DOSAGE FORMS DAILY; 200 | 6 MCG, 2-0-0-0
     Route: 055
  7. LEVETIRACETAM. [Suspect]
     Active Substance: LEVETIRACETAM
     Dosage: 3000 MILLIGRAM DAILY;  1-1-1-0
     Route: 048
  8. THIAMIN [Concomitant]
     Active Substance: THIAMINE
     Dosage: 200 MILLIGRAM DAILY; 1-0-0-0
     Route: 048
  9. ZOPICLON [Concomitant]
     Active Substance: ZOPICLONE
     Dosage: 7.5 MILLIGRAM DAILY;  0-0-1-0
     Route: 048

REACTIONS (2)
  - Abdominal pain [Unknown]
  - Condition aggravated [Unknown]
